FAERS Safety Report 4344736-X (Version None)
Quarter: 2004Q2

REPORT INFORMATION
  Report Type: 
  Country: None (occurrence: None)
  Receive Date: 20040420
  Receipt Date: 20040408
  Transmission Date: 20050107
  Serious: Yes (Disabling, Other)
  Sender: FDA-Public Use
  Company Number: 2003153944US

PATIENT
  Age: 49 Year
  Sex: Male
  Weight: 77.1 kg

DRUGS (9)
  1. ZYVOX [Suspect]
     Indication: STAPHYLOCOCCAL INFECTION
     Dosage: 600 MG, BID, ORAL
     Route: 048
     Dates: start: 20020301, end: 20021108
  2. NORTRIPTYLINE HCL [Concomitant]
  3. DARVOCET-N 100 [Concomitant]
  4. VALIUM [Concomitant]
  5. PAXIL [Concomitant]
  6. PREVACID [Concomitant]
  7. ASPIRIN [Concomitant]
  8. HYDROCODONE [Concomitant]
  9. AMBIEN [Concomitant]

REACTIONS (21)
  - ACCIDENT [None]
  - ANAEMIA MACROCYTIC [None]
  - ANAEMIA VITAMIN B12 DEFICIENCY [None]
  - BALANCE DISORDER [None]
  - BLINDNESS [None]
  - COLOUR BLINDNESS [None]
  - CONDITION AGGRAVATED [None]
  - DEMYELINATION [None]
  - DRUG EFFECT DECREASED [None]
  - DYSURIA [None]
  - EATING DISORDER [None]
  - ENCEPHALOMALACIA [None]
  - ERECTILE DYSFUNCTION [None]
  - FEELING ABNORMAL [None]
  - IDIOSYNCRATIC DRUG REACTION [None]
  - INTESTINAL FUNCTIONAL DISORDER [None]
  - MULTIPLE SCLEROSIS [None]
  - NEUROPATHY PERIPHERAL [None]
  - OPTIC NEUROPATHY [None]
  - OVERDOSE [None]
  - RASH [None]
